FAERS Safety Report 20546967 (Version 1)
Quarter: 2022Q1

REPORT INFORMATION
  Report Type: Spontaneous
  Country: CA (occurrence: None)
  Receive Date: 20220303
  Receipt Date: 20220303
  Transmission Date: 20220424
  Serious: Yes (Other)
  Sender: FDA-Public Use
  Company Number: CA-ROCHE-3032718

PATIENT
  Age: 50 Year
  Sex: Female
  Weight: 49.940 kg

DRUGS (1)
  1. ACTEMRA [Suspect]
     Active Substance: TOCILIZUMAB
     Indication: Arthritis
     Route: 058

REACTIONS (8)
  - Abdominal pain [Unknown]
  - Abnormal dreams [Unknown]
  - Acne [Unknown]
  - Dyspnoea [Unknown]
  - Epilepsy [Unknown]
  - Hormone level abnormal [Unknown]
  - Pruritus [Unknown]
  - Urticaria [Unknown]
